FAERS Safety Report 12296459 (Version 1)
Quarter: 2016Q2

REPORT INFORMATION
  Report Type: Not Available
  Country: JP (occurrence: JP)
  Receive Date: 20160422
  Receipt Date: 20160422
  Transmission Date: 20160815
  Serious: Yes (Other)
  Sender: FDA-Public Use
  Company Number: JP-ANIPHARMA-2016-JP-000003

PATIENT
  Age: 50 Year
  Sex: Male

DRUGS (3)
  1. FLUVOXAMINE (NON-SPECIFIC) [Concomitant]
     Active Substance: FLUVOXAMINE
     Dosage: 75 MG DAILY
  2. RISPERIDONE (NON-SPECIFIC) [Suspect]
     Active Substance: RISPERIDONE
     Dosage: 12 MG DAILY
  3. HALOPERIDOL. [Suspect]
     Active Substance: HALOPERIDOL
     Dosage: 9 MG DAILY

REACTIONS (1)
  - Neuroleptic-induced deficit syndrome [Unknown]
